FAERS Safety Report 16198009 (Version 1)
Quarter: 2019Q2

REPORT INFORMATION
  Report Type: Spontaneous
  Country: US (occurrence: US)
  Receive Date: 20190412
  Receipt Date: 20190412
  Transmission Date: 20190711
  Serious: Yes (Disabling)
  Sender: FDA-Public Use
  Company Number: None

PATIENT
  Age: 37 Year
  Sex: Female
  Weight: 64.86 kg

DRUGS (12)
  1. MIRENA [Suspect]
     Active Substance: LEVONORGESTREL
     Dates: start: 20180628, end: 20181203
  2. OMEGA (FLAX) [Concomitant]
  3. LIOTHYRONINE [Concomitant]
     Active Substance: LIOTHYRONINE
  4. VITAMIN D [Concomitant]
     Active Substance: VITAMIN D NOS
  5. MELOXICAM. [Concomitant]
     Active Substance: MELOXICAM
  6. BIOTIN WITH COLLAGEN [Concomitant]
  7. VITAMIN E [Concomitant]
     Active Substance: .ALPHA.-TOCOPHEROL
  8. MYLAN [Concomitant]
     Active Substance: FENTANYL
  9. FLONASE [Concomitant]
     Active Substance: FLUTICASONE PROPIONATE
  10. SYNTHROID [Concomitant]
     Active Substance: LEVOTHYROXINE SODIUM
  11. XYZAL [Concomitant]
     Active Substance: LEVOCETIRIZINE DIHYDROCHLORIDE
  12. MONTELUKAST [Concomitant]
     Active Substance: MONTELUKAST SODIUM

REACTIONS (5)
  - Pain [None]
  - Arthralgia [None]
  - Hormone level abnormal [None]
  - Product complaint [None]
  - Sjogren^s syndrome [None]

NARRATIVE: CASE EVENT DATE: 20180628
